FAERS Safety Report 4828527-9 (Version None)
Quarter: 2005Q4

REPORT INFORMATION
  Report Type: 
  Country: None (occurrence: None)
  Receive Date: 20051110
  Receipt Date: 20051101
  Transmission Date: 20060501
  Serious: Yes (Other)
  Sender: FDA-Public Use
  Company Number: 2005150232

PATIENT
  Age: 71 Year
  Sex: Female
  Weight: 84.369 kg

DRUGS (8)
  1. LIPITOR [Suspect]
     Indication: BLOOD CHOLESTEROL INCREASED
     Dosage: 10 MG (10 MG, 1 IN 1 D)
     Dates: start: 19950101, end: 20050501
  2. TRAVATAN [Suspect]
     Indication: ILL-DEFINED DISORDER
     Dosage: OPHTHALMIC
     Route: 047
  3. VALSARTAN [Concomitant]
  4. TOPROL (METOPROLOL) [Concomitant]
  5. PREVACID [Concomitant]
  6. VYTORIN [Concomitant]
  7. ASPIRIN [Concomitant]
  8. ZOCOR [Concomitant]

REACTIONS (8)
  - CATARACT [None]
  - DIVERTICULUM [None]
  - EYE DISORDER [None]
  - FATIGUE [None]
  - INTRAOCULAR PRESSURE INCREASED [None]
  - IRITIS [None]
  - MEDICAL DEVICE COMPLICATION [None]
  - MYALGIA [None]
